FAERS Safety Report 8439947-8 (Version None)
Quarter: 2012Q2

REPORT INFORMATION
  Report Type: 
  Country: None (occurrence: None)
  Receive Date: 20120615
  Receipt Date: 20120606
  Transmission Date: 20120825
  Serious: Yes (Disabling)
  Sender: FDA-Public Use
  Company Number: FR-ASTRAZENECA-2012SE38484

PATIENT
  Age: 88 Year
  Sex: Female

DRUGS (2)
  1. CRESTOR [Suspect]
     Indication: HYPERCHOLESTEROLAEMIA
     Route: 048
  2. BETA BLOCKER [Concomitant]

REACTIONS (2)
  - VISUAL ACUITY REDUCED [None]
  - EYE HAEMORRHAGE [None]
